FAERS Safety Report 11088631 (Version 1)
Quarter: 2015Q2

REPORT INFORMATION
  Report Type: Spontaneous
  Country: FR (occurrence: FR)
  Receive Date: 20150504
  Receipt Date: 20150504
  Transmission Date: 20150821
  Serious: Yes (Other)
  Sender: FDA-Public Use
  Company Number: FR-GLAXOSMITHKLINE-FR2015GSK056770

PATIENT
  Sex: Female

DRUGS (10)
  1. AZILECT [Suspect]
     Active Substance: RASAGILINE MESYLATE
     Indication: PARKINSONISM
     Dosage: 1 MG, QD
     Route: 048
     Dates: start: 201105
  2. REQUIP LP [Suspect]
     Active Substance: ROPINIROLE HYDROCHLORIDE
     Indication: PARKINSONISM
     Dosage: 8 MG, QD
     Route: 048
     Dates: start: 201206
  3. SIFROL [Suspect]
     Active Substance: PRAMIPEXOLE
     Indication: PRODUCT USED FOR UNKNOWN INDICATION
     Dosage: 2.5 MG, QD
     Route: 048
     Dates: start: 200610, end: 201206
  4. PARLODEL [Suspect]
     Active Substance: BROMOCRIPTINE MESYLATE
     Indication: PARKINSONISM
     Dosage: 60 MG, QD
     Route: 048
     Dates: start: 200010, end: 200610
  5. DEROXAT [Concomitant]
     Active Substance: PAROXETINE HYDROCHLORIDE
     Dosage: 20 MG, QD
     Route: 048
     Dates: start: 201212
  6. MODOPAR [Suspect]
     Active Substance: BENSERAZIDE HYDROCHLORIDE\LEVODOPA
     Indication: PARKINSONISM
     Dosage: 1 DF, UNK
     Route: 048
     Dates: start: 200301
  7. SINEMET [Suspect]
     Active Substance: CARBIDOPA\LEVODOPA
     Indication: PARKINSONISM
     Dosage: 450 MG, QD
     Route: 048
     Dates: start: 200207, end: 200301
  8. SIFROL [Suspect]
     Active Substance: PRAMIPEXOLE
     Dosage: 0.7 MG, UNK
     Route: 048
     Dates: start: 201003, end: 201206
  9. MODOPAR [Suspect]
     Active Substance: BENSERAZIDE HYDROCHLORIDE\LEVODOPA
     Dosage: 62.5 MG, UNK
  10. MODOPAR [Suspect]
     Active Substance: BENSERAZIDE HYDROCHLORIDE\LEVODOPA
     Dosage: 125 MG, UNK

REACTIONS (4)
  - Compulsive shopping [Not Recovered/Not Resolved]
  - Eating disorder [Not Recovered/Not Resolved]
  - Pathological gambling [Not Recovered/Not Resolved]
  - Hypersexuality [Not Recovered/Not Resolved]

NARRATIVE: CASE EVENT DATE: 2001
